FAERS Safety Report 6202395-5 (Version None)
Quarter: 2009Q2

REPORT INFORMATION
  Report Type: 
  Country: None (occurrence: None)
  Receive Date: 20090521
  Receipt Date: 20090521
  Transmission Date: 20091009
  Serious: Yes (Other)
  Sender: FDA-Public Use
  Company Number: None

PATIENT
  Sex: Male
  Weight: 77.1115 kg

DRUGS (3)
  1. LEVAQUIN [Suspect]
     Indication: SINUSITIS
     Dosage: 500 MG
     Dates: start: 20081201
  2. LEVAQUIN [Suspect]
     Indication: SINUSITIS
     Dosage: 500 MG
     Dates: start: 20090101
  3. PROTHERAPY [Concomitant]

REACTIONS (4)
  - ARTHROPATHY [None]
  - MUSCLE RUPTURE [None]
  - PAIN [None]
  - TENDONITIS [None]
